FAERS Safety Report 24823368 (Version 1)
Quarter: 2025Q1

REPORT INFORMATION
  Report Type: Report from Study
  Country: GB (occurrence: GB)
  Receive Date: 20250109
  Receipt Date: 20250109
  Transmission Date: 20250409
  Serious: Yes (Death, Other)
  Sender: PAREXEL
  Company Number: GB-PPDUS-2024ST000917_test

PATIENT

DRUGS (16)
  1. ELZONRIS [Suspect]
     Active Substance: TAGRAXOFUSP-ERZS
     Indication: Product used for unknown indication
     Dates: start: 20240122
  2. ELZONRIS [Suspect]
     Active Substance: TAGRAXOFUSP-ERZS
     Dates: start: 20240124
  3. ELZONRIS [Suspect]
     Active Substance: TAGRAXOFUSP-ERZS
     Dates: start: 20240125
  4. ELZONRIS [Suspect]
     Active Substance: TAGRAXOFUSP-ERZS
     Dates: start: 20240126
  5. ELZONRIS [Suspect]
     Active Substance: TAGRAXOFUSP-ERZS
     Dates: start: 20240129
  6. ALLOPURINOL [Concomitant]
     Active Substance: ALLOPURINOL
     Indication: Tumour lysis syndrome
     Dates: start: 20240122, end: 20240128
  7. DEXAMETHASONE [Concomitant]
     Active Substance: DEXAMETHASONE
     Indication: Prophylaxis
     Dates: start: 20240122, end: 20240128
  8. ACETAMINOPHEN [Concomitant]
     Active Substance: ACETAMINOPHEN
     Indication: Antipyresis
     Dates: start: 20240122, end: 20240128
  9. CHLORPHENIRAMINE MALEATE [Concomitant]
     Active Substance: CHLORPHENIRAMINE MALEATE
     Indication: Antiallergic therapy
     Dates: start: 20240122, end: 20240128
  10. FUROSEMIDE [Concomitant]
     Active Substance: FUROSEMIDE
     Indication: Diuretic therapy
     Dates: start: 20240128
  11. LANSOPRAZOLE [Concomitant]
     Active Substance: LANSOPRAZOLE
     Indication: Prophylaxis
     Dates: start: 20240122, end: 20240129
  12. METOCLOPRAMIDE [Concomitant]
     Active Substance: METOCLOPRAMIDE
     Indication: Nausea
     Dates: start: 20240128, end: 20240129
  13. SODIUM PHOSPHATE, MONOBASIC, ANHYDROUS [Concomitant]
     Active Substance: SODIUM PHOSPHATE, MONOBASIC, ANHYDROUS
     Indication: Product used for unknown indication
     Dates: start: 20240127, end: 20240128
  14. PREDNISOLONE [Concomitant]
     Active Substance: PREDNISOLONE
     Indication: Vasculitis
     Dates: start: 20240122, end: 20240128
  15. RASBURICASE [Concomitant]
     Active Substance: RASBURICASE
     Indication: Tumour lysis syndrome
     Dates: start: 20240128, end: 20240129
  16. Vitamin A eye ointment [Concomitant]
     Indication: Product used for unknown indication
     Dates: start: 20240122, end: 20240128

REACTIONS (4)
  - Capillary leak syndrome [Fatal]
  - Oxygen saturation decreased [Unknown]
  - Weight increased [Unknown]
  - Pyrexia [Unknown]

NARRATIVE: CASE EVENT DATE: 20240122
